FAERS Safety Report 18727974 (Version 1)
Quarter: 2021Q1

REPORT INFORMATION
  Report Type: Spontaneous
  Country: GR (occurrence: GR)
  Receive Date: 20210111
  Receipt Date: 20210111
  Transmission Date: 20210419
  Serious: Yes (Hospitalization)
  Sender: FDA-Public Use
  Company Number: GR-ANIPHARMA-2020-GR-000046

PATIENT
  Age: 84 Year
  Sex: Male

DRUGS (1)
  1. CIPROFLOXACIN (NON?SPECIFIC) [Suspect]
     Active Substance: CIPROFLOXACIN
     Indication: URINARY TRACT INFECTION
     Dosage: 500 MG TWICE DAILY

REACTIONS (1)
  - Henoch-Schonlein purpura [Recovered/Resolved]
